FAERS Safety Report 5752543-6 (Version None)
Quarter: 2008Q2

REPORT INFORMATION
  Report Type: 
  Country: None (occurrence: None)
  Receive Date: 20080529
  Receipt Date: 20080521
  Transmission Date: 20081010
  Serious: Yes (Other)
  Sender: FDA-Public Use
  Company Number: PHHY2008CA08607

PATIENT

DRUGS (1)
  1. DIOVAN T30230++HY [Suspect]
     Dosage: 320 MG, QD
     Route: 048

REACTIONS (1)
  - MICROALBUMINURIA [None]
